FAERS Safety Report 18513882 (Version 2)
Quarter: 2021Q1

REPORT INFORMATION
  Report Type: Other
  Country: CA (occurrence: CA)
  Receive Date: 20201118
  Receipt Date: 20210223
  Transmission Date: 20210419
  Serious: Yes (Hospitalization, Other)
  Sender: FDA-Public Use
  Company Number: CA-CELLTRION INC.-2020CA031380

PATIENT

DRUGS (17)
  1. RITUXIMAB (UNKNOWN) [Suspect]
     Active Substance: RITUXIMAB
     Indication: MICROSCOPIC POLYANGIITIS
     Dosage: 1 EVERY 1 WEEKS
     Route: 042
  2. CALCIUM [Concomitant]
     Active Substance: CALCIUM
  3. SULFATRIM [Concomitant]
     Active Substance: SULFAMETHOXAZOLE\TRIMETHOPRIM
     Dosage: 3 EVERY 1 WEEK
     Route: 065
  4. HYDRALAZINE [Concomitant]
     Active Substance: HYDRALAZINE HYDROCHLORIDE
  5. ARANESP [Concomitant]
     Active Substance: DARBEPOETIN ALFA
  6. MAGNESIUM SULFATE. [Concomitant]
     Active Substance: MAGNESIUM SULFATE
  7. AMLODIPINE [Concomitant]
     Active Substance: AMLODIPINE BESYLATE
  8. SYNTHROID [Concomitant]
     Active Substance: LEVOTHYROXINE SODIUM
  9. ZOPICLONE [Concomitant]
     Active Substance: ZOPICLONE
  10. PANTOPRAZOLE [Concomitant]
     Active Substance: PANTOPRAZOLE
  11. LASIX [Concomitant]
     Active Substance: FUROSEMIDE
  12. LYRICA [Concomitant]
     Active Substance: PREGABALIN
     Indication: ABDOMINAL PAIN
     Route: 065
  13. ROPINIROLE. [Concomitant]
     Active Substance: ROPINIROLE
  14. TAMSULOSIN [Concomitant]
     Active Substance: TAMSULOSIN
  15. CYCLOPHOSPHAMIDE. [Concomitant]
     Active Substance: CYCLOPHOSPHAMIDE
  16. ONDANSETRON [Concomitant]
     Active Substance: ONDANSETRON
  17. PREDNISONE. [Concomitant]
     Active Substance: PREDNISONE

REACTIONS (6)
  - Diabetic gastroparesis [Unknown]
  - Weight decreased [Unknown]
  - Herpes zoster [Unknown]
  - Abdominal pain [Unknown]
  - Constipation [Unknown]
  - Vomiting [Unknown]
